FAERS Safety Report 7476128-9 (Version None)
Quarter: 2011Q2

REPORT INFORMATION
  Report Type: 
  Country: None (occurrence: None)
  Receive Date: 20110512
  Receipt Date: 20110506
  Transmission Date: 20111010
  Serious: Yes (Hospitalization)
  Sender: FDA-Public Use
  Company Number: FR-MERCK-1105FRA00035

PATIENT
  Age: 58 Year
  Sex: Male

DRUGS (8)
  1. JANUVIA [Suspect]
     Indication: DIABETES MELLITUS
     Route: 048
     Dates: start: 20110101, end: 20110101
  2. REPAGLINIDE [Concomitant]
     Indication: DIABETES MELLITUS
     Route: 065
  3. ACENOCOUMAROL [Concomitant]
     Route: 065
  4. INDAPAMIDE AND PERINDOPRIL ARGININE [Concomitant]
     Route: 065
  5. PREGABALIN [Concomitant]
     Route: 065
  6. METHOTREXATE [Concomitant]
     Indication: CROHN'S DISEASE
     Route: 065
     Dates: start: 20100601
  7. SOTALOL HYDROCHLORIDE [Concomitant]
     Route: 065
  8. ESOMEPRAZOLE MAGNESIUM [Concomitant]
     Route: 065

REACTIONS (2)
  - DISTAL ILEAL OBSTRUCTION SYNDROME [None]
  - CROHN'S DISEASE [None]
